FAERS Safety Report 7910102-0 (Version None)
Quarter: 2011Q4

REPORT INFORMATION
  Report Type: 
  Country: None (occurrence: None)
  Receive Date: 20111111
  Receipt Date: 20111028
  Transmission Date: 20120403
  Serious: Yes (Death, Hospitalization, Disabling)
  Sender: FDA-Public Use
  Company Number: MX-ROCHE-648626

PATIENT
  Sex: Female
  Weight: 83 kg

DRUGS (10)
  1. XELODA [Suspect]
     Indication: BREAST CANCER
     Dosage: FREQUENCY REPORTED AS 14 DAYS.
     Route: 048
  2. SUCRALFATE [Concomitant]
  3. FILGRASTIM [Concomitant]
     Dates: start: 20090403, end: 20090407
  4. FLUCONAZOLE [Suspect]
     Indication: PRODUCT USED FOR UNKNOWN INDICATION
     Route: 048
     Dates: start: 20090803, end: 20090811
  5. OMEPRAZOLE [Concomitant]
  6. XELODA [Suspect]
     Dosage: FREQUENCY: DAILY FOR 14 DAYS, DOSE REDUCED
     Route: 048
  7. IMIPENEM [Concomitant]
     Dates: start: 20090403, end: 20090809
  8. XELODA [Suspect]
     Dosage: FREQUENCU: DAILY FOR 14 DAYS, DOSE FORM 3-0-2, LAST DOSE PRIOR TO SAE 26 JUL 2009
     Route: 048
     Dates: start: 20090713, end: 20090726
  9. CAPTOPRIL [Concomitant]
  10. NYSTATIN [Concomitant]

REACTIONS (9)
  - DEHYDRATION [None]
  - PALMAR-PLANTAR ERYTHRODYSAESTHESIA SYNDROME [None]
  - HYPERBILIRUBINAEMIA [None]
  - FEBRILE NEUTROPENIA [None]
  - DIARRHOEA [None]
  - GASTRIC ULCER [None]
  - HEPATOTOXICITY [None]
  - RENAL FAILURE ACUTE [None]
  - PNEUMONIA [None]
